APPROVED DRUG PRODUCT: AZELASTINE HYDROCHLORIDE
Active Ingredient: AZELASTINE HYDROCHLORIDE
Strength: 0.05%
Dosage Form/Route: SOLUTION/DROPS;OPHTHALMIC
Application: A078738 | Product #001
Applicant: SUN PHARMACEUTICAL INDUSTRIES LTD
Approved: Jun 21, 2010 | RLD: No | RS: No | Type: DISCN